FAERS Safety Report 5746561-1 (Version None)
Quarter: 2008Q2

REPORT INFORMATION
  Report Type: 
  Country: None (occurrence: None)
  Receive Date: 20080522
  Receipt Date: 20080516
  Transmission Date: 20081010
  Serious: Yes (Other)
  Sender: FDA-Public Use
  Company Number: GB-MERCK-0805GBR00112

PATIENT
  Sex: Female

DRUGS (1)
  1. ZOCOR [Suspect]
     Indication: CARDIOVASCULAR DISORDER
     Route: 048

REACTIONS (1)
  - THROMBOCYTOPENIC PURPURA [None]
